FAERS Safety Report 20225175 (Version 1)
Quarter: 2021Q4

REPORT INFORMATION
  Report Type: Other
  Country: PL (occurrence: PL)
  Receive Date: 20211223
  Receipt Date: 20211223
  Transmission Date: 20220303
  Serious: Yes (Other)
  Sender: FDA-Public Use
  Company Number: PL-CELLTRION INC.-2021PL017204

PATIENT

DRUGS (5)
  1. RITUXIMAB [Suspect]
     Active Substance: RITUXIMAB
     Indication: Product used for unknown indication
     Dosage: UNK
     Route: 065
     Dates: start: 20211125
  2. ELTROMBOPAG [Suspect]
     Active Substance: ELTROMBOPAG
     Indication: Product used for unknown indication
     Dosage: 50 MG, QD
     Route: 065
  3. ELTROMBOPAG [Suspect]
     Active Substance: ELTROMBOPAG
     Dosage: 75 MG, QD
     Route: 065
  4. CYCLOSPORINE [Suspect]
     Active Substance: CYCLOSPORINE
     Indication: Product used for unknown indication
     Dosage: UNK
     Route: 065
  5. DANAZOL [Concomitant]
     Active Substance: DANAZOL
     Indication: Product used for unknown indication
     Dosage: UNK
     Route: 065
     Dates: start: 20211130

REACTIONS (22)
  - Type 2 diabetes mellitus [Unknown]
  - Gastrointestinal haemorrhage [Unknown]
  - Sepsis [Unknown]
  - Lumbar vertebral fracture [Unknown]
  - Cardiac failure chronic [Unknown]
  - Immune thrombocytopenia [Unknown]
  - Platelet count decreased [Unknown]
  - Atrial fibrillation [Unknown]
  - Hepatomegaly [Unknown]
  - Gout [Unknown]
  - Contusion [Unknown]
  - Epistaxis [Unknown]
  - Diabetic foot [Unknown]
  - Splenomegaly [Unknown]
  - Musculoskeletal discomfort [Unknown]
  - Hepatic steatosis [Unknown]
  - Hypertension [Unknown]
  - Gastritis [Unknown]
  - Gastrooesophageal reflux disease [Unknown]
  - Drug ineffective [Unknown]
  - Treatment failure [Unknown]
  - Off label use [Unknown]

NARRATIVE: CASE EVENT DATE: 20110101
